FAERS Safety Report 16635196 (Version 1)
Quarter: 2019Q3

REPORT INFORMATION
  Report Type: Report from Study
  Country: FR (occurrence: FR)
  Receive Date: 20190726
  Receipt Date: 20190726
  Transmission Date: 20191004
  Serious: Yes (Hospitalization, Other)
  Sender: FDA-Public Use
  Company Number: PHHY2018FR053111

PATIENT
  Sex: Male
  Weight: 81 kg

DRUGS (5)
  1. VOTRIENT [Suspect]
     Active Substance: PAZOPANIB HYDROCHLORIDE
     Indication: RENAL CANCER METASTATIC
     Dosage: UNK UNK, QD
     Route: 048
     Dates: start: 20180119
  2. VOTRIENT [Suspect]
     Active Substance: PAZOPANIB HYDROCHLORIDE
     Dosage: UNK UNK, QD
     Route: 048
     Dates: start: 20180720, end: 20180814
  3. KARDEGIC [Concomitant]
     Active Substance: ASPIRIN DL-LYSINE
     Indication: PRODUCT USED FOR UNKNOWN INDICATION
     Route: 065
  4. VOTRIENT [Suspect]
     Active Substance: PAZOPANIB HYDROCHLORIDE
     Dosage: UNK UNK, QD
     Route: 048
     Dates: start: 20180516, end: 20180712
  5. VOTRIENT [Suspect]
     Active Substance: PAZOPANIB HYDROCHLORIDE
     Dosage: UNK UNK, QD
     Route: 048
     Dates: end: 20181121

REACTIONS (13)
  - Superinfection [Unknown]
  - Weight decreased [Unknown]
  - Skin toxicity [Unknown]
  - Onychoclasis [Unknown]
  - Haemoglobin decreased [Unknown]
  - Nephritic syndrome [Unknown]
  - Abdominal pain [Recovered/Resolved]
  - Nephrolithiasis [Recovered/Resolved]
  - Renal cancer [Unknown]
  - Malignant neoplasm progression [Unknown]
  - Aphthous ulcer [Unknown]
  - Haematuria [Unknown]
  - Pyelonephritis acute [Recovered/Resolved]

NARRATIVE: CASE EVENT DATE: 20180627
